FAERS Safety Report 16420746 (Version 2)
Quarter: 2019Q3

REPORT INFORMATION
  Report Type: Report from Study
  Country: US (occurrence: US)
  Receive Date: 20190612
  Receipt Date: 20190731
  Transmission Date: 20191004
  Serious: Yes (Hospitalization, Other)
  Sender: FDA-Public Use
  Company Number: US-BAYER-2019-109889

PATIENT
  Age: 62 Year
  Sex: Male
  Weight: 79.37 kg

DRUGS (15)
  1. STIVARGA [Suspect]
     Active Substance: REGORAFENIB
     Indication: HEPATOCELLULAR CARCINOMA
     Dosage: DAILY DOSE 80 MG
     Dates: start: 20190527, end: 20190602
  2. LISINOPRIL. [Concomitant]
     Active Substance: LISINOPRIL
     Dosage: UNK
  3. HYDRALAZINE HCL [Concomitant]
     Active Substance: HYDRALAZINE HYDROCHLORIDE
     Dosage: DAILY DOSE 100 MG
  4. BUTALBITAL, ACETAMINOPHEN, AND CAFFEINE [Concomitant]
     Active Substance: ACETAMINOPHEN\BUTALBITAL\CAFFEINE
     Dosage: UNK
  5. STIVARGA [Suspect]
     Active Substance: REGORAFENIB
     Indication: HEPATOCELLULAR CARCINOMA
     Dosage: DAILY DOSE 160 MG
     Dates: start: 20190610, end: 20190616
  6. MELOXICAM. [Concomitant]
     Active Substance: MELOXICAM
     Dosage: DAILY DOSE 15 MG
  7. ARIPIPRAZOLE. [Concomitant]
     Active Substance: ARIPIPRAZOLE
     Dosage: DAILY DOSE 10 MG
  8. MORPHINE [Concomitant]
     Active Substance: MORPHINE
     Dosage: UNK
  9. STIVARGA [Suspect]
     Active Substance: REGORAFENIB
     Indication: HEPATOCELLULAR CARCINOMA
     Dosage: DAILY DOSE 120 MG
     Dates: start: 20190603, end: 20190609
  10. CARVEDILOL. [Concomitant]
     Active Substance: CARVEDILOL
     Dosage: DAILY DOSE 12.5 MG
  11. FAMOTIDINE. [Concomitant]
     Active Substance: FAMOTIDINE
     Dosage: UNK
  12. TRAZODONE HYDROCHLORIDE. [Concomitant]
     Active Substance: TRAZODONE HYDROCHLORIDE
     Dosage: UNK
  13. TRAMADOL HCL [Concomitant]
     Active Substance: TRAMADOL HYDROCHLORIDE
     Dosage: DAILY DOSE 50 MG
  14. MEGACE ES [Concomitant]
     Active Substance: MEGESTROL ACETATE
     Indication: DECREASED APPETITE
     Dosage: DAILY DOSE 625/5 MG/ML
     Route: 048
  15. KEPPRA [Concomitant]
     Active Substance: LEVETIRACETAM
     Dosage: DAILY DOSE 1000 MG

REACTIONS (23)
  - Flatulence [None]
  - Ear pain [None]
  - Ear discomfort [Unknown]
  - Asthenia [None]
  - Asthenia [Unknown]
  - Vomiting [Unknown]
  - Decreased appetite [None]
  - Abdominal pain lower [Recovered/Resolved]
  - Confusional state [None]
  - Product dose omission [None]
  - Fatigue [Unknown]
  - Vomiting [None]
  - Off label use [None]
  - Arthralgia [None]
  - Abnormal loss of weight [None]
  - Ear infection [None]
  - Arthritis [None]
  - Nausea [Unknown]
  - Insomnia [Recovering/Resolving]
  - Dyspnoea [Unknown]
  - Arthropathy [None]
  - Otorrhoea [None]
  - Ear discomfort [None]

NARRATIVE: CASE EVENT DATE: 201906
